FAERS Safety Report 4596000-1 (Version None)
Quarter: 2005Q1

REPORT INFORMATION
  Report Type: 
  Country: None (occurrence: None)
  Receive Date: 20050224
  Receipt Date: 20050209
  Transmission Date: 20050727
  Serious: No
  Sender: FDA-Public Use
  Company Number: 2005AP01167

PATIENT
  Age: 67 Year
  Sex: Female

DRUGS (2)
  1. ARIMIDEX [Suspect]
     Indication: BREAST CANCER
     Dates: start: 20021001, end: 20021101
  2. RADIOTHERAPY [Suspect]
     Dosage: 50 GY IN 25 FRACTIONS
     Dates: start: 20021001, end: 20021101

REACTIONS (3)
  - CD4/CD8 RATIO DECREASED [None]
  - CRYPTOGENIC ORGANIZING PNEUMONIA [None]
  - PNEUMONITIS [None]
